FAERS Safety Report 8967754 (Version 1)
Quarter: 2012Q4

REPORT INFORMATION
  Report Type: Spontaneous
  Country: US (occurrence: None)
  Receive Date: 20121213
  Receipt Date: 20121213
  Transmission Date: 20130627
  Serious: Yes (Life-Threatening)
  Sender: FDA-Public Use
  Company Number: None

PATIENT
  Age: 65 Year
  Weight: 80.74 kg

DRUGS (2)
  1. FLECAINIDE [Suspect]
     Indication: HEART RATE IRREGULAR
     Dosage: 100 mg   2 x day   po
     Route: 048
     Dates: start: 20101225, end: 20101231
  2. FLECAINIDE [Suspect]
     Indication: HEART RATE IRREGULAR
     Dates: start: 20121203, end: 20121206

REACTIONS (10)
  - Palpitations [None]
  - Dizziness [None]
  - Hyperhidrosis [None]
  - Headache [None]
  - Respiratory disorder [None]
  - Product substitution issue [None]
  - Product quality issue [None]
  - Heart rate increased [None]
  - Feeling hot [None]
  - Nervousness [None]
